FAERS Safety Report 13832670 (Version 1)
Quarter: 2017Q3

REPORT INFORMATION
  Report Type: Spontaneous
  Country: US (occurrence: US)
  Receive Date: 20170803
  Receipt Date: 20170803
  Transmission Date: 20171127
  Serious: Yes (Other)
  Sender: FDA-Public Use
  Company Number: US-ROCHE-688894

PATIENT
  Age: 58 Year
  Sex: Female
  Weight: 52.2 kg

DRUGS (6)
  1. BONIVA [Suspect]
     Active Substance: IBANDRONATE SODIUM
     Indication: OSTEOPOROSIS
     Dosage: FREQUENCY REPORTED AS ONCE
     Route: 048
     Dates: start: 20100226, end: 20100303
  2. ALLEGRA-D [Concomitant]
     Active Substance: FEXOFENADINE\PSEUDOEPHEDRINE
     Indication: HYPERSENSITIVITY
     Dosage: DOSE: ONE, FREQUENCY: PRN?^ALL MORE THAN 1 YR, PRIOR TO IBANDRONIC ACID^
     Route: 048
  3. VITAMIN D [Concomitant]
     Active Substance: CHOLECALCIFEROL
     Route: 065
  4. CENTRUM SILVER [Concomitant]
     Active Substance: MINERALS\VITAMINS
     Dosage: DOSE: ONE, FREQUENCY: DAILY, INDICATION: WELLNESS?^GREATER THAN 1 GR, PRIOR TO IBANDRONIC ACID^
     Route: 048
  5. ACETAMINOPHEN W CAFFEINE [Concomitant]
     Active Substance: ACETAMINOPHEN\CAFFEINE
     Indication: HEADACHE
     Dosage: DOSE: ONE, FREQUENCY: PRN?^GREATER THAN 1 GR, PRIOR TO IBANDRONIC ACID^
     Route: 048
  6. VITAMIN C [Concomitant]
     Active Substance: ASCORBIC ACID
     Route: 065

REACTIONS (14)
  - Abdominal pain [Recovered/Resolved]
  - Back pain [Not Recovered/Not Resolved]
  - Headache [Unknown]
  - Pyrexia [Not Recovered/Not Resolved]
  - Abdominal rigidity [Not Recovered/Not Resolved]
  - Bone pain [Not Recovered/Not Resolved]
  - Influenza like illness [Not Recovered/Not Resolved]
  - Lethargy [Not Recovered/Not Resolved]
  - Chills [Not Recovered/Not Resolved]
  - Urinary tract infection [Unknown]
  - Dehydration [Unknown]
  - Fatigue [Not Recovered/Not Resolved]
  - Nausea [Unknown]
  - Hypophagia [Unknown]

NARRATIVE: CASE EVENT DATE: 20100227
